FAERS Safety Report 4287748-7 (Version None)
Quarter: 2004Q1

REPORT INFORMATION
  Report Type: 
  Country: None (occurrence: None)
  Receive Date: 20040205
  Receipt Date: 20040116
  Transmission Date: 20041129
  Serious: Yes (Other)
  Sender: FDA-Public Use
  Company Number: USA031254498

PATIENT

DRUGS (1)
  1. XIGRIS [Suspect]
     Indication: SEPSIS
     Dates: start: 20030101, end: 20030101

REACTIONS (4)
  - DISEASE RECURRENCE [None]
  - POST PROCEDURAL COMPLICATION [None]
  - SEPSIS [None]
  - SURGERY [None]
